FAERS Safety Report 21065216 (Version 1)
Quarter: 2022Q3

REPORT INFORMATION
  Report Type: Spontaneous
  Country: US (occurrence: None)
  Receive Date: 20220711
  Receipt Date: 20220711
  Transmission Date: 20221027
  Serious: Yes (Other)
  Sender: FDA-Public Use
  Company Number: None

PATIENT
  Age: 64 Year
  Sex: Female
  Weight: 45.9 kg

DRUGS (17)
  1. TORSEMIDE [Suspect]
     Active Substance: TORSEMIDE
     Dates: start: 20220525, end: 20220610
  2. CATAPRES [Concomitant]
     Active Substance: CLONIDINE HYDROCHLORIDE
  3. HYDRALAZINE [Concomitant]
     Active Substance: HYDRALAZINE HYDROCHLORIDE
  4. METOPROLOL [Concomitant]
     Active Substance: METOPROLOL
  5. Omlesartan [Concomitant]
  6. Esradiol [Concomitant]
  7. LOVASTATIN [Concomitant]
  8. LEVOTHYROXINE SODIUM [Concomitant]
     Active Substance: LEVOTHYROXINE SODIUM
  9. OXYBUTYNIN [Concomitant]
     Active Substance: OXYBUTYNIN
  10. TEGRETOL [Concomitant]
     Active Substance: CARBAMAZEPINE
  11. VISTARIL [Concomitant]
     Active Substance: HYDROXYZINE PAMOATE
  12. KLONOPIN [Concomitant]
     Active Substance: CLONAZEPAM
  13. TYLENOL EXTRA STRENGTH [Concomitant]
     Active Substance: ACETAMINOPHEN
  14. MELATONIN [Concomitant]
     Active Substance: MELATONIN
  15. Pericolace [Concomitant]
  16. CALCIUM [Concomitant]
     Active Substance: CALCIUM
  17. BIOTIN [Suspect]
     Active Substance: BIOTIN

REACTIONS (21)
  - Asthenia [None]
  - Dizziness [None]
  - Gait disturbance [None]
  - Vertigo [None]
  - Myalgia [None]
  - Nausea [None]
  - Dry mouth [None]
  - Head discomfort [None]
  - Vision blurred [None]
  - Skin wrinkling [None]
  - Chills [None]
  - Nervousness [None]
  - Abdominal pain upper [None]
  - Irritability [None]
  - Dehydration [None]
  - Hypotension [None]
  - Fatigue [None]
  - Myalgia [None]
  - Electric shock sensation [None]
  - Oedema peripheral [None]
  - Musculoskeletal stiffness [None]

NARRATIVE: CASE EVENT DATE: 20220530
